FAERS Safety Report 11919960 (Version 1)
Quarter: 2016Q1

REPORT INFORMATION
  Report Type: Spontaneous
  Country: US (occurrence: None)
  Receive Date: 20160114
  Receipt Date: 20160114
  Transmission Date: 20160526
  Serious: Yes (Life-Threatening, Hospitalization)
  Sender: FDA-Public Use
  Company Number: None

PATIENT
  Age: 64 Year
  Sex: Female
  Weight: 100.7 kg

DRUGS (1)
  1. COSENTYX [Suspect]
     Active Substance: SECUKINUMAB
     Indication: PSORIATIC ARTHROPATHY
     Dosage: 150 MG ?EVERY 4 WEEKS?SUBCUTANEOUS

REACTIONS (3)
  - Chest discomfort [None]
  - Swollen tongue [None]
  - Urticaria [None]

NARRATIVE: CASE EVENT DATE: 20151103
